FAERS Safety Report 24120406 (Version 4)
Quarter: 2024Q4

REPORT INFORMATION
  Report Type: Spontaneous
  Country: US (occurrence: US)
  Receive Date: 20240722
  Receipt Date: 20241204
  Transmission Date: 20250115
  Serious: No
  Sender: PFIZER
  Company Number: US-PFIZER INC-PV202400077748

PATIENT
  Age: 64 Year
  Sex: Female
  Weight: 89.161 kg

DRUGS (6)
  1. LORBRENA [Suspect]
     Active Substance: LORLATINIB
     Indication: Non-small cell lung cancer metastatic
     Dosage: 100 MG, 1X/DAY (1 TABLET (100MG), ONCE A DAY ON DAY 1-28 EVERY 28 DAYS)
     Route: 048
     Dates: start: 20240617
  2. LORBRENA [Suspect]
     Active Substance: LORLATINIB
     Dosage: 25 MG, DAILY (1 TAB (25MG) EVERYDAY FOR 2 WEEKS, THEN INC TO 2 TABS (50MG) EVERYDAY FOR 2 WEEKS)
     Route: 048
     Dates: start: 20240630
  3. LORBRENA [Suspect]
     Active Substance: LORLATINIB
     Dosage: 50 MG, DAILY (1 TAB (25MG) EVERYDAY FOR 2 WEEKS, THEN INC TO 2 TABS (50MG) EVERYDAY FOR 2 WEEKS)
     Route: 048
     Dates: start: 202407
  4. LORBRENA [Suspect]
     Active Substance: LORLATINIB
     Dosage: 75 MG, DAILY (3 TABS (75MG) QDAY X 2 WEEKS, THEN INCREASE TO 4 TABS (100MG) QDAY X 2 WEEKS)
     Route: 048
  5. LORBRENA [Suspect]
     Active Substance: LORLATINIB
     Dosage: 100 MG, DAILY (3 TABS (75MG) QDAY X 2 WEEKS, THEN INCREASE TO 4 TABS (100MG) QDAY X 2 WEEKS)
     Route: 048
  6. LORBRENA [Suspect]
     Active Substance: LORLATINIB
     Dosage: 100 MG, 1X/DAY (1 PO (100MG) DAILY)
     Route: 048

REACTIONS (4)
  - Blood glucose increased [Not Recovered/Not Resolved]
  - Blood pressure increased [Not Recovered/Not Resolved]
  - Lipids increased [Not Recovered/Not Resolved]
  - Off label use [Unknown]

NARRATIVE: CASE EVENT DATE: 20240630
